FAERS Safety Report 24103048 (Version 2)
Quarter: 2024Q4

REPORT INFORMATION
  Report Type: Report from Study
  Country: US (occurrence: US)
  Receive Date: 20240717
  Receipt Date: 20241016
  Transmission Date: 20250115
  Serious: Yes (Other)
  Sender: ABBVIE
  Company Number: US-ABBVIE-5839559

PATIENT
  Age: 72 Year

DRUGS (2)
  1. DURYSTA [Suspect]
     Active Substance: BIMATOPROST
     Indication: Intraocular pressure test
     Dosage: TIME INTERVAL: AS NECESSARY
     Route: 050
     Dates: start: 20240712, end: 20240712
  2. DURYSTA [Suspect]
     Active Substance: BIMATOPROST
     Indication: Glaucoma

REACTIONS (2)
  - Device dislocation [Recovering/Resolving]
  - Implantation complication [Recovering/Resolving]

NARRATIVE: CASE EVENT DATE: 20240712
